FAERS Safety Report 20709240 (Version 1)
Quarter: 2022Q2

REPORT INFORMATION
  Report Type: Spontaneous
  Country: US (occurrence: US)
  Receive Date: 20220414
  Receipt Date: 20220414
  Transmission Date: 20220721
  Serious: No
  Sender: FDA-Public Use
  Company Number: US-NOVAST LABORATORIES INC.-2021NOV000297

PATIENT

DRUGS (1)
  1. LEVONORGESTREL [Suspect]
     Active Substance: LEVONORGESTREL
     Indication: Post coital contraception
     Dosage: 1 TABLET SINGLE
     Route: 048
     Dates: start: 20210802, end: 20210802

REACTIONS (3)
  - Vomiting [Unknown]
  - Fatigue [Recovered/Resolved]
  - Abdominal pain [Not Recovered/Not Resolved]

NARRATIVE: CASE EVENT DATE: 20210802
